FAERS Safety Report 8357823-6 (Version None)
Quarter: 2012Q2

REPORT INFORMATION
  Report Type: 
  Country: None (occurrence: None)
  Receive Date: 20120514
  Receipt Date: 20110719
  Transmission Date: 20120825
  Serious: Yes (Hospitalization)
  Sender: FDA-Public Use
  Company Number: US-ALEXION-A201100084

PATIENT
  Sex: Male

DRUGS (6)
  1. MULTI-VITAMIN [Concomitant]
     Dosage: UNK
  2. SOLIRIS [Suspect]
     Indication: PAROXYSMAL NOCTURNAL HAEMOGLOBINURIA
     Dosage: 900 MG, Q2W
     Route: 042
  3. IMITREX [Concomitant]
     Dosage: UNK
  4. COUMADIN [Concomitant]
     Dosage: UNK
  5. TOPAMAX [Concomitant]
     Dosage: UNK
  6. FIORICET [Concomitant]
     Dosage: UNK

REACTIONS (7)
  - MIGRAINE [None]
  - ASTHENIA [None]
  - FATIGUE [None]
  - STRESS [None]
  - HEADACHE [None]
  - HAEMOGLOBIN DECREASED [None]
  - APATHY [None]
